FAERS Safety Report 4812223-8 (Version None)
Quarter: 2005Q4

REPORT INFORMATION
  Report Type: 
  Country: None (occurrence: None)
  Receive Date: 20051027
  Receipt Date: 20051027
  Transmission Date: 20060501
  Serious: Yes (Hospitalization)
  Sender: FDA-Public Use
  Company Number: None

PATIENT
  Age: 9 Month
  Sex: Female
  Weight: 7 kg

DRUGS (6)
  1. TOPAMAX [Suspect]
     Indication: CONVULSION
     Dosage: 25MG   TID   INTRAPERIT
     Route: 033
     Dates: start: 20050809, end: 20050909
  2. PHENOBARBITAL TAB [Concomitant]
  3. PRIMIDONE [Concomitant]
  4. LORAZEPAM [Concomitant]
  5. PREDNISOLONE [Concomitant]
  6. GLYCOPRROLATE [Concomitant]

REACTIONS (1)
  - PYREXIA [None]
